FAERS Safety Report 9280455 (Version 1)
Quarter: 2013Q2

REPORT INFORMATION
  Report Type: Spontaneous
  Country: US (occurrence: None)
  Receive Date: 20130507
  Receipt Date: 20130507
  Transmission Date: 20140414
  Serious: Yes (Hospitalization)
  Sender: FDA-Public Use
  Company Number: None

PATIENT
  Age: 41 Year
  Sex: Male
  Weight: 92.6 kg

DRUGS (10)
  1. AZACITIDINE [Suspect]
     Indication: ACUTE MYELOID LEUKAEMIA
     Dosage: X5DAYS028DAY
     Route: 058
     Dates: start: 20130304, end: 20130503
  2. VALPROIC ACID [Suspect]
     Indication: ACUTE MYELOID LEUKAEMIA
     Dosage: 1000MG IN AM AND 1500MG IN PM
     Route: 048
     Dates: start: 20130304, end: 20130502
  3. BIOTENE [Concomitant]
  4. FLUCONAZOLE [Concomitant]
  5. FOLIC ACID [Concomitant]
  6. MULTIPLE VITAMIN [Concomitant]
  7. PROCHLORPERAZINE [Concomitant]
  8. SULFAMETHOXAZOLE WITH TRIMETHOPRIM [Concomitant]
  9. TACROLIMUS [Concomitant]
  10. VALACYCLOVIR [Concomitant]

REACTIONS (3)
  - Pancreatitis acute [None]
  - Dehydration [None]
  - Orthostatic hypotension [None]
